FAERS Safety Report 17743667 (Version 3)
Quarter: 2021Q3

REPORT INFORMATION
  Report Type: Report from Study
  Country: PA (occurrence: PA)
  Receive Date: 20200505
  Receipt Date: 20210823
  Transmission Date: 20211014
  Serious: Yes (Other)
  Sender: FDA-Public Use
  Company Number: PA-SA-2020SA115074

PATIENT
  Age: 56 Year
  Sex: Male
  Weight: 92.07 kg

DRUGS (2)
  1. AMLODIPINE/IRBESARTAN [Suspect]
     Active Substance: AMLODIPINE BESYLATE\IRBESARTAN
     Indication: HYPERTENSION
     Dosage: 300 MG OF IRBESARTAN + 5 MG OF AMLODIPINE
     Route: 065
     Dates: start: 201906
  2. IRBESARTAN. [Suspect]
     Active Substance: IRBESARTAN
     Indication: HYPERTENSION
     Dosage: 300 MG, QD
     Route: 048
     Dates: start: 2017, end: 201906

REACTIONS (7)
  - Drug ineffective [Unknown]
  - Hypertension [Recovered/Resolved]
  - Cerebral ischaemia [Recovered/Resolved]
  - Weight increased [Not Recovered/Not Resolved]
  - Feeling hot [Recovered/Resolved]
  - Memory impairment [Recovered/Resolved]
  - Anxiety [Recovered/Resolved]

NARRATIVE: CASE EVENT DATE: 201906
